FAERS Safety Report 10161686 (Version 1)
Quarter: 2014Q2

REPORT INFORMATION
  Report Type: Spontaneous
  Country: US (occurrence: None)
  Receive Date: 20140508
  Receipt Date: 20140508
  Transmission Date: 20141212
  Serious: Yes (Other)
  Sender: FDA-Public Use
  Company Number: None

PATIENT
  Age: 33 Year
  Sex: Male
  Weight: 97.52 kg

DRUGS (1)
  1. METHYLPHENIDATE HYDROCHLORIDE [Suspect]
     Indication: ATTENTION DEFICIT/HYPERACTIVITY DISORDER
     Dosage: 1 PILL ONCE DAILY TAKEN BY MOUTH
     Route: 048
     Dates: start: 20140107, end: 20140301

REACTIONS (10)
  - Heart rate increased [None]
  - Tremor [None]
  - Hyperhidrosis [None]
  - Anxiety [None]
  - Stress [None]
  - Bruxism [None]
  - Pain in jaw [None]
  - Panic attack [None]
  - Product substitution issue [None]
  - Product quality issue [None]
